FAERS Safety Report 12726249 (Version 1)
Quarter: 2016Q3

REPORT INFORMATION
  Report Type: Spontaneous
  Country: US (occurrence: US)
  Receive Date: 20160906
  Receipt Date: 20160906
  Transmission Date: 20161109
  Serious: Yes (Disabling)
  Sender: FDA-Public Use
  Company Number: None

PATIENT
  Age: 68 Year
  Sex: Female
  Weight: 40.5 kg

DRUGS (1)
  1. REMICADE [Suspect]
     Active Substance: INFLIXIMAB
     Indication: CROHN^S DISEASE
     Dosage: OTHER STRENGTH:;OTHER DOSE:;OTHER FREQUENCY:Q 8 WEEKS;OTHER ROUTE:
     Route: 042
     Dates: start: 20150519, end: 20160329

REACTIONS (1)
  - Hepatic enzyme increased [None]

NARRATIVE: CASE EVENT DATE: 20160519
